FAERS Safety Report 9244754 (Version 2)
Quarter: 2013Q3

REPORT INFORMATION
  Report Type: Report from Study
  Country: JP (occurrence: JP)
  Receive Date: 20130422
  Receipt Date: 20130702
  Transmission Date: 20140515
  Serious: Yes (Death)
  Sender: FDA-Public Use
  Company Number: JP-SANOFI-AVENTIS-2013SA039581

PATIENT
  Sex: Male
  Weight: 42 kg

DRUGS (10)
  1. LANTUS SOLOSTAR [Suspect]
     Indication: TYPE 2 DIABETES MELLITUS
     Dosage: DOSE:2 UNIT(S)
     Route: 058
     Dates: start: 20121015
  2. SOLOSTAR [Suspect]
     Indication: DEVICE THERAPY
     Dates: start: 20121015
  3. AMARYL [Concomitant]
     Indication: TYPE 2 DIABETES MELLITUS
     Route: 048
     Dates: end: 20121112
  4. AMARYL [Concomitant]
     Indication: TYPE 2 DIABETES MELLITUS
     Route: 048
     Dates: start: 20121112, end: 20121117
  5. AMARYL [Concomitant]
     Indication: TYPE 2 DIABETES MELLITUS
     Route: 048
     Dates: start: 20121117
  6. GASTER D [Concomitant]
     Route: 048
  7. BLOPRESS [Concomitant]
  8. ACTOS [Concomitant]
     Indication: TYPE 2 DIABETES MELLITUS
     Route: 048
  9. BASEN [Concomitant]
     Indication: TYPE 2 DIABETES MELLITUS
     Route: 048
  10. NESINA [Concomitant]
     Indication: TYPE 2 DIABETES MELLITUS
     Route: 048
     Dates: start: 20120804

REACTIONS (1)
  - Death [Fatal]
